FAERS Safety Report 15613513 (Version 1)
Quarter: 2018Q4

REPORT INFORMATION
  Report Type: Spontaneous
  Country: IL (occurrence: IL)
  Receive Date: 20181113
  Receipt Date: 20181113
  Transmission Date: 20190205
  Serious: Yes (Hospitalization)
  Sender: FDA-Public Use
  Company Number: IL-SA-2018SA305021

PATIENT
  Age: 66 Year
  Sex: Male

DRUGS (2)
  1. METFORMIN HCL [Concomitant]
     Active Substance: METFORMIN HYDROCHLORIDE
     Indication: DIABETES MELLITUS
     Dosage: 850 MG, QD
     Route: 065
  2. LANTUS [Suspect]
     Active Substance: INSULIN GLARGINE
     Indication: DIABETES MELLITUS
     Dosage: 20 U, QD
     Route: 058

REACTIONS (6)
  - Peripheral artery occlusion [Recovering/Resolving]
  - Peripheral coldness [Recovered/Resolved]
  - Limb discomfort [Recovering/Resolving]
  - Sensory loss [Recovering/Resolving]
  - Wound [Recovering/Resolving]
  - Decubitus ulcer [Recovering/Resolving]

NARRATIVE: CASE EVENT DATE: 20181108
